FAERS Safety Report 7217709-7 (Version None)
Quarter: 2011Q1

REPORT INFORMATION
  Report Type: 
  Country: None (occurrence: None)
  Receive Date: 20110110
  Receipt Date: 20101231
  Transmission Date: 20110831
  Serious: Yes (Other)
  Sender: FDA-Public Use
  Company Number: CA-JNJFOC-20110100306

PATIENT
  Sex: Male
  Weight: 86 kg

DRUGS (3)
  1. METFORMIN [Concomitant]
     Dosage: 3-5 TABS DAILY
     Route: 048
  2. REMICADE [Suspect]
     Indication: ANKYLOSING SPONDYLITIS
     Route: 042
  3. MTX [Concomitant]

REACTIONS (2)
  - WHITE BLOOD CELL COUNT INCREASED [None]
  - SYSTEMIC LUPUS ERYTHEMATOSUS [None]
